FAERS Safety Report 21231610 (Version 1)
Quarter: 2022Q3

REPORT INFORMATION
  Report Type: Spontaneous
  Country: US (occurrence: US)
  Receive Date: 20220819
  Receipt Date: 20220819
  Transmission Date: 20221026
  Serious: No
  Sender: FDA-Public Use
  Company Number: US-BRISTOL-MYERS SQUIBB COMPANY-2022-084055

PATIENT
  Age: 46 Year
  Sex: Female
  Weight: 240.4 kg

DRUGS (2)
  1. ELIQUIS [Suspect]
     Active Substance: APIXABAN
     Indication: Pulmonary embolism
     Route: 048
     Dates: start: 202207
  2. TYLENOL EXTRA STRENGTH [Concomitant]
     Active Substance: ACETAMINOPHEN
     Indication: Pain
     Route: 065

REACTIONS (5)
  - Heavy menstrual bleeding [Unknown]
  - Dysmenorrhoea [Unknown]
  - Peripheral swelling [Unknown]
  - Skin discolouration [Unknown]
  - Asthenia [Unknown]
